FAERS Safety Report 5400377-4 (Version None)
Quarter: 2007Q3

REPORT INFORMATION
  Report Type: 
  Country: None (occurrence: None)
  Receive Date: 20070730
  Receipt Date: 20070723
  Transmission Date: 20080115
  Serious: Yes (Hospitalization)
  Sender: FDA-Public Use
  Company Number: B0475504A

PATIENT
  Age: 24 Year
  Sex: Female

DRUGS (4)
  1. PAXIL [Suspect]
     Indication: DEPRESSION
     Dosage: 20MG PER DAY
     Route: 048
     Dates: start: 20051201, end: 20060620
  2. NITRAZEPAM [Suspect]
     Indication: DEPRESSION
     Route: 048
     Dates: start: 20060602, end: 20060620
  3. ACETAMINOPHEN [Suspect]
     Indication: NASOPHARYNGITIS
     Route: 048
     Dates: start: 20060611, end: 20060620
  4. VEGETAMIN [Suspect]
     Indication: DEPRESSION
     Route: 048
     Dates: start: 20060602, end: 20060620

REACTIONS (7)
  - CYTOMEGALOVIRUS ANTIBODY POSITIVE [None]
  - DRUG RASH WITH EOSINOPHILIA AND SYSTEMIC SYMPTOMS [None]
  - GENERALISED ERYTHEMA [None]
  - HEPATIC FUNCTION ABNORMAL [None]
  - HYPERBILIRUBINAEMIA [None]
  - MUCOSAL EROSION [None]
  - PYREXIA [None]
